FAERS Safety Report 8760543 (Version 3)
Quarter: 2013Q1

REPORT INFORMATION
  Report Type: Spontaneous
  Country: US (occurrence: None)
  Receive Date: 20120822
  Receipt Date: 20121105
  Transmission Date: 20140127
  Serious: Yes (Hospitalization)
  Sender: FDA-Public Use
  Company Number: FK201202368

PATIENT
  Age: 43 Year
  Sex: Male
  Weight: 101 kg

DRUGS (3)
  1. CARBOPLATIN [Suspect]
     Indication: LUNG ADENOCARCINOMA STAGE IV
     Dosage: AUC=6
     Dates: start: 20120523
  2. MORAB-003 (FARLETUZUMAB) (FARLETUZUMAB) [Suspect]
     Indication: LUNG ADENOCARCINOMA STAGE IV
     Dates: start: 20120523
  3. PEMETREXED [Suspect]
     Indication: LUNG ADENOCARCINOMA STAGE IV
     Dates: start: 20120523

REACTIONS (3)
  - Pyrexia [None]
  - Oedema [None]
  - Rash [None]
